FAERS Safety Report 9617006 (Version 1)
Quarter: 2013Q4

REPORT INFORMATION
  Report Type: Spontaneous
  Country: SI (occurrence: SI)
  Receive Date: 20131011
  Receipt Date: 20131011
  Transmission Date: 20140711
  Serious: Yes (Other)
  Sender: FDA-Public Use
  Company Number: SI-TEVA-435735ISR

PATIENT
  Age: 61 Year
  Sex: Female

DRUGS (4)
  1. OXALIPLATIN TEVA 5 MG/ML, SOLUTION ? DILUER POUR PERFUSION [Suspect]
     Indication: COLON CANCER
     Route: 042
     Dates: start: 20130910, end: 20130910
  2. XELODA [Concomitant]
  3. NOLPAZA [Concomitant]
  4. REGLAN [Concomitant]

REACTIONS (6)
  - Infusion related reaction [Recovered/Resolved]
  - Chest discomfort [Recovered/Resolved]
  - Palpitations [Recovered/Resolved]
  - Feeling hot [Recovered/Resolved]
  - Erythema [Recovered/Resolved]
  - Oxygen saturation decreased [Recovered/Resolved]
